FAERS Safety Report 11128673 (Version 3)
Quarter: 2015Q2

REPORT INFORMATION
  Report Type: Spontaneous
  Country: IT (occurrence: None)
  Receive Date: 20150519
  Receipt Date: 20150624
  Transmission Date: 20150821
  Serious: No
  Sender: FDA-Public Use
  Company Number: 1505ITA001528

PATIENT
  Age: 79 Year
  Sex: Female

DRUGS (1)
  1. ISOCEF (CEFTIBUTEN) CAPSULE, 400MG [Suspect]
     Active Substance: CEFTIBUTEN
     Indication: OROPHARYNGEAL PAIN
     Route: 048
     Dates: end: 201505

REACTIONS (4)
  - Lip oedema [None]
  - Pruritus generalised [None]
  - Eye swelling [None]
  - Eye irritation [None]

NARRATIVE: CASE EVENT DATE: 20150501
